FAERS Safety Report 5440453-3 (Version None)
Quarter: 2007Q3

REPORT INFORMATION
  Report Type: 
  Country: None (occurrence: None)
  Receive Date: 20070831
  Receipt Date: 20070827
  Transmission Date: 20080115
  Serious: Yes (Death, Hospitalization, Other)
  Sender: FDA-Public Use
  Company Number: US-ELI_LILLY_AND_COMPANY-US200707001558

PATIENT
  Sex: Male

DRUGS (4)
  1. ALIMTA [Suspect]
     Indication: NON-SMALL CELL LUNG CANCER STAGE IV
     Dosage: 500 MG, UNK
     Dates: start: 20070619, end: 20070619
  2. VITAMIN B-12 [Concomitant]
     Indication: VITAMIN SUPPLEMENTATION
     Dosage: 1 MG, UNK
     Route: 030
     Dates: start: 20070612
  3. FOLIC ACID [Concomitant]
     Indication: VITAMIN SUPPLEMENTATION
     Dosage: 400 MG, DAILY (1/D)
     Route: 048
     Dates: start: 20070612
  4. CORTICOSTEROID NOS [Concomitant]
     Dosage: 4 MG, OTHER
     Route: 048
     Dates: start: 20070618

REACTIONS (5)
  - BLOOD COUNT ABNORMAL [None]
  - BONE MARROW FAILURE [None]
  - DRUG CLEARANCE DECREASED [None]
  - MUCOSAL INFLAMMATION [None]
  - RENAL FAILURE [None]
